FAERS Safety Report 10032318 (Version 2)
Quarter: 2014Q2

REPORT INFORMATION
  Report Type: Spontaneous
  Country: US (occurrence: US)
  Receive Date: 20140324
  Receipt Date: 20140418
  Transmission Date: 20141212
  Serious: Yes (Congenital Anomaly, Other)
  Sender: FDA-Public Use
  Company Number: US-PFIZER INC-2014076456

PATIENT
  Sex: Male

DRUGS (12)
  1. ZOLOFT [Suspect]
     Indication: DEPRESSION
     Dosage: UNK
     Route: 064
     Dates: start: 2006, end: 2007
  2. ZOLOFT [Suspect]
     Dosage: UNK
     Route: 064
     Dates: start: 2008, end: 2008
  3. SERTRALINE HCL [Suspect]
     Indication: DEPRESSION
     Dosage: UNK
     Route: 064
     Dates: start: 2006, end: 2007
  4. SERTRALINE HCL [Suspect]
     Dosage: UNK
     Route: 064
     Dates: start: 2008, end: 2008
  5. IRON PILL [Concomitant]
     Dosage: UNK, PILL
     Route: 064
  6. VALTREX [Concomitant]
     Dosage: UNK
     Route: 064
  7. IBUPROFEN [Concomitant]
     Dosage: UNK
     Route: 064
  8. NATALCARE [Concomitant]
     Route: 064
  9. TRAMADOL [Concomitant]
     Dosage: UNK
     Route: 064
  10. AMOXICILLIN [Concomitant]
     Dosage: UNK
     Route: 064
  11. ACETAMINOPHEN [Concomitant]
     Dosage: UNK
     Route: 064
  12. CIPROFLOXACIN [Concomitant]
     Dosage: UNK
     Route: 064

REACTIONS (7)
  - Maternal exposure during pregnancy [Unknown]
  - Pulmonary artery stenosis congenital [Unknown]
  - Heart disease congenital [Unknown]
  - Fallot^s tetralogy [Unknown]
  - Double outlet right ventricle [Unknown]
  - Patent ductus arteriosus [Unknown]
  - Atrial septal defect [Unknown]
